FAERS Safety Report 16009074 (Version 1)
Quarter: 2019Q1

REPORT INFORMATION
  Report Type: Spontaneous
  Country: IT (occurrence: IT)
  Receive Date: 20190226
  Receipt Date: 20190226
  Transmission Date: 20190418
  Serious: Yes (Death, Other)
  Sender: FDA-Public Use
  Company Number: IT-NAPPMUNDI-GBR-2019-0064476

PATIENT
  Age: 54 Year
  Sex: Female

DRUGS (4)
  1. PREGABALIN. [Suspect]
     Active Substance: PREGABALIN
     Indication: NEURALGIA
     Dosage: UNK
     Route: 065
  2. BUPRENORPHINE. [Suspect]
     Active Substance: BUPRENORPHINE
     Indication: BRACHIAL PLEXOPATHY
     Dosage: UNK
     Route: 062
  3. ACETAMINOPHEN. [Suspect]
     Active Substance: ACETAMINOPHEN
     Indication: NEURALGIA
     Dosage: UNK
     Route: 065
  4. INDOMETHACIN                       /00003801/ [Suspect]
     Active Substance: INDOMETHACIN
     Indication: BRACHIAL PLEXOPATHY
     Dosage: UNK
     Route: 065

REACTIONS (4)
  - Death [Fatal]
  - Post lumbar puncture syndrome [Unknown]
  - Vomiting [Unknown]
  - Drug ineffective [Unknown]
